FAERS Safety Report 9995442 (Version 1)
Quarter: 2014Q1

REPORT INFORMATION
  Report Type: Spontaneous
  Country: US (occurrence: None)
  Receive Date: 20140304
  Receipt Date: 20140304
  Transmission Date: 20141002
  Serious: Yes (Other)
  Sender: FDA-Public Use
  Company Number: RB-55379-2013

PATIENT
  Sex: Male

DRUGS (4)
  1. SUBOXONE [Suspect]
     Indication: DRUG DEPENDENCE
     Dosage: SUBOXONE FILM; DOSING DETAILS UNKNOWN UNKNOWN
     Dates: end: 20090706
  2. SUBUTEX [Suspect]
     Indication: DRUG DEPENDENCE
     Route: 060
     Dates: start: 20090706
  3. KLONOPIN [Concomitant]
  4. RITALIN [Concomitant]

REACTIONS (14)
  - Rash [None]
  - Hypertension [None]
  - Tachycardia [None]
  - Hypersensitivity [None]
  - Headache [None]
  - Nausea [None]
  - Drug withdrawal syndrome [None]
  - Feeling guilty [None]
  - Depression [None]
  - Activities of daily living impaired [None]
  - Anxiety [None]
  - Attention deficit/hyperactivity disorder [None]
  - Drug tolerance increased [None]
  - Incorrect dose administered [None]
